FAERS Safety Report 9950323 (Version 1)
Quarter: 2014Q1

REPORT INFORMATION
  Report Type: Report from Study
  Country: US (occurrence: US)
  Receive Date: 20140304
  Receipt Date: 20140304
  Transmission Date: 20141002
  Serious: No
  Sender: FDA-Public Use
  Company Number: US-ABBVIE-13P-163-1069089-00

PATIENT
  Age: 47 Year
  Sex: Female

DRUGS (7)
  1. HUMIRA [Suspect]
     Indication: CROHN^S DISEASE
     Dates: start: 20130306, end: 20130320
  2. HUMIRA [Suspect]
     Dates: start: 20130320
  3. GABAPENTIN [Concomitant]
     Indication: PRODUCT USED FOR UNKNOWN INDICATION
  4. ELMIRON [Concomitant]
     Indication: CYSTITIS INTERSTITIAL
  5. THYROSYN [Concomitant]
     Indication: THYROID DISORDER
  6. CLONAZEPAM [Concomitant]
     Indication: MIGRAINE
  7. TREXIMET [Concomitant]
     Indication: MIGRAINE

REACTIONS (1)
  - Pain in extremity [Not Recovered/Not Resolved]
